FAERS Safety Report 14531514 (Version 2)
Quarter: 2018Q2

REPORT INFORMATION
  Report Type: Spontaneous
  Country: US (occurrence: US)
  Receive Date: 20180214
  Receipt Date: 20180416
  Transmission Date: 20180711
  Serious: No
  Sender: FDA-Public Use
  Company Number: US-PFIZER INC-2018052970

PATIENT
  Age: 63 Year
  Sex: Female

DRUGS (1)
  1. XELJANZ XR [Suspect]
     Active Substance: TOFACITINIB CITRATE
     Indication: FELTY^S SYNDROME
     Dosage: 11 MG, 1X/DAY
     Route: 048

REACTIONS (5)
  - Nasopharyngitis [Unknown]
  - Malaise [Unknown]
  - Fatigue [Unknown]
  - Product use in unapproved indication [Unknown]
  - Pain [Unknown]
